FAERS Safety Report 16590810 (Version 1)
Quarter: 2019Q3

REPORT INFORMATION
  Report Type: Spontaneous
  Country: US (occurrence: US)
  Receive Date: 20190717
  Receipt Date: 20190717
  Transmission Date: 20191004
  Serious: Yes (Hospitalization)
  Sender: FDA-Public Use
  Company Number: None

PATIENT
  Age: 28 Week
  Sex: Female

DRUGS (1)
  1. VANCOMYCIN [Suspect]
     Active Substance: VANCOMYCIN
     Dosage: ?          OTHER FREQUENCY:X 1;?
     Route: 042
     Dates: start: 20190716, end: 20190716

REACTIONS (1)
  - Erythema [None]

NARRATIVE: CASE EVENT DATE: 20190716
